FAERS Safety Report 6642720-4 (Version None)
Quarter: 2010Q1

REPORT INFORMATION
  Report Type: 
  Country: None (occurrence: None)
  Receive Date: 20100319
  Receipt Date: 20100309
  Transmission Date: 20100710
  Serious: Yes (Other)
  Sender: FDA-Public Use
  Company Number: US-PFIZER INC-2010030646

PATIENT
  Sex: Female

DRUGS (1)
  1. CHANTIX [Suspect]
     Indication: SMOKING CESSATION THERAPY

REACTIONS (5)
  - DEPRESSED MOOD [None]
  - EPILEPSY [None]
  - MOOD SWINGS [None]
  - NIGHTMARE [None]
  - SLEEP DISORDER [None]
